FAERS Safety Report 4425175-X (Version None)
Quarter: 2004Q3

REPORT INFORMATION
  Report Type: 
  Country: None (occurrence: None)
  Receive Date: 20040813
  Receipt Date: 20040803
  Transmission Date: 20050211
  Serious: Yes (Hospitalization)
  Sender: FDA-Public Use
  Company Number: FR-JNJFOC-20040705155

PATIENT
  Age: 63 Year
  Sex: Male

DRUGS (13)
  1. IXPRIM [Suspect]
     Route: 049
  2. VOLTAREN [Suspect]
     Route: 049
  3. MYOLASTAN [Concomitant]
     Indication: DRUG USE FOR UNKNOWN INDICATION
     Route: 049
  4. CAPTOPRIL AND HYDROCHLOROTHIAZIDE [Concomitant]
     Route: 049
  5. CAPTOPRIL AND HYDROCHLOROTHIAZIDE [Concomitant]
     Indication: HYPERTENSION
     Route: 049
  6. AVLOCARDYL [Concomitant]
     Indication: HYPERTENSION
     Route: 049
  7. TEMESTA [Concomitant]
     Indication: DEPRESSION
     Route: 049
  8. EFFEXOR [Concomitant]
     Indication: DEPRESSION
     Route: 049
  9. INIPOMP [Concomitant]
     Indication: GASTRITIS
     Route: 049
  10. NOCTRAN [Concomitant]
     Route: 049
  11. NOCTRAN [Concomitant]
     Route: 049
  12. NOCTRAN [Concomitant]
     Route: 049
  13. CLARYTINE [Concomitant]
     Route: 049

REACTIONS (5)
  - CONFUSIONAL STATE [None]
  - DRUG INTERACTION [None]
  - ENTEROBACTER SEPSIS [None]
  - RESPIRATORY ALKALOSIS [None]
  - TOXIC EPIDERMAL NECROLYSIS [None]
